FAERS Safety Report 6917919-X (Version None)
Quarter: 2010Q3

REPORT INFORMATION
  Report Type: 
  Country: None (occurrence: None)
  Receive Date: 20100810
  Receipt Date: 20090904
  Transmission Date: 20110219
  Serious: No
  Sender: FDA-Public Use
  Company Number: US-PFIZER INC-2009244028

PATIENT
  Sex: Female
  Weight: 50.8 kg

DRUGS (1)
  1. TOVIAZ [Suspect]
     Indication: HYPERTONIC BLADDER
     Dosage: 8 MG, 2X/DAY
     Route: 048
     Dates: start: 20090601

REACTIONS (1)
  - DRUG INEFFECTIVE [None]
